FAERS Safety Report 25272413 (Version 1)
Quarter: 2025Q2

REPORT INFORMATION
  Report Type: Spontaneous
  Country: US (occurrence: US)
  Receive Date: 20250506
  Receipt Date: 20250506
  Transmission Date: 20250716
  Serious: No
  Sender: ZYDUS PHARM
  Company Number: US-CADILA HEALTHCARE LIMITED-US-ZYDUS-123012

PATIENT

DRUGS (1)
  1. LENALIDOMIDE [Suspect]
     Active Substance: LENALIDOMIDE
     Indication: Product used for unknown indication
     Route: 065
     Dates: start: 20250409

REACTIONS (4)
  - Pruritus [Unknown]
  - Asthenia [Unknown]
  - Headache [Unknown]
  - Memory impairment [Unknown]

NARRATIVE: CASE EVENT DATE: 20250413
